FAERS Safety Report 5362016-0 (Version None)
Quarter: 2007Q2

REPORT INFORMATION
  Report Type: 
  Country: None (occurrence: None)
  Receive Date: 20070615
  Receipt Date: 20070612
  Transmission Date: 20071010
  Serious: Yes (Death, Hospitalization)
  Sender: FDA-Public Use
  Company Number: 2007SP009740

PATIENT
  Age: 85 Year
  Sex: Male
  Weight: 154 kg

DRUGS (1)
  1. TEMODAR [Suspect]
     Indication: METASTATIC MALIGNANT MELANOMA
     Dosage: 140 MG; QD;

REACTIONS (4)
  - DEHYDRATION [None]
  - DISEASE PROGRESSION [None]
  - MALIGNANT MELANOMA [None]
  - ORAL INTAKE REDUCED [None]
